FAERS Safety Report 7112066-9 (Version None)
Quarter: 2010Q4

REPORT INFORMATION
  Report Type: 
  Country: None (occurrence: None)
  Receive Date: 20101119
  Receipt Date: 20101109
  Transmission Date: 20110411
  Serious: Yes (Other)
  Sender: FDA-Public Use
  Company Number: CA-US-EMD SERONO, INC.-230096J08CAN

PATIENT
  Sex: Female

DRUGS (3)
  1. REBIF [Suspect]
     Indication: RELAPSING-REMITTING MULTIPLE SCLEROSIS
     Route: 058
     Dates: start: 20030122
  2. REBIF [Suspect]
     Indication: MULTIPLE SCLEROSIS
  3. COUGH DROPS [Concomitant]

REACTIONS (12)
  - ABDOMINAL DISCOMFORT [None]
  - CORNEAL ABRASION [None]
  - EYE DISORDER [None]
  - INJECTION SITE ERYTHEMA [None]
  - INJECTION SITE NODULE [None]
  - INJECTION SITE PAPULE [None]
  - NAUSEA [None]
  - OROPHARYNGEAL PAIN [None]
  - PAIN [None]
  - PALPITATIONS [None]
  - PRODUCTIVE COUGH [None]
  - RASH [None]
